FAERS Safety Report 20917035 (Version 2)
Quarter: 2022Q3

REPORT INFORMATION
  Report Type: Report from Study
  Country: FR (occurrence: FR)
  Receive Date: 20220606
  Receipt Date: 20220704
  Transmission Date: 20221026
  Serious: Yes (Hospitalization, Other)
  Sender: FDA-Public Use
  Company Number: FR-ABBVIE-22K-056-4421478-00

PATIENT
  Age: 74 Year
  Sex: Female

DRUGS (2)
  1. CARBIDOPA\LEVODOPA [Suspect]
     Active Substance: CARBIDOPA\LEVODOPA
     Indication: Parkinson^s disease
     Route: 050
     Dates: start: 202110
  2. CARBIDOPA\LEVODOPA [Suspect]
     Active Substance: CARBIDOPA\LEVODOPA

REACTIONS (10)
  - Venous thrombosis [Unknown]
  - Nerve root injury cervical [Unknown]
  - Dyskinesia [Recovering/Resolving]
  - Fracture [Unknown]
  - Device alarm issue [Unknown]
  - Carpal tunnel syndrome [Unknown]
  - Vitamin B6 deficiency [Unknown]
  - Stoma site extravasation [Unknown]
  - Hallucination [Unknown]
  - Initial insomnia [Unknown]

NARRATIVE: CASE EVENT DATE: 20220101
